FAERS Safety Report 5287510-2 (Version None)
Quarter: 2007Q1

REPORT INFORMATION
  Report Type: 
  Country: None (occurrence: None)
  Receive Date: 20070116
  Receipt Date: 20061003
  Transmission Date: 20070707
  Serious: No
  Sender: FDA-Public Use
  Company Number: 2006SP003523

PATIENT
  Sex: Female

DRUGS (2)
  1. LUNESTA [Suspect]
     Dosage: 2 MG, PRN, ORAL
     Route: 048
     Dates: start: 20060501
  2. KLONOPIN [Suspect]
     Dosage: 0.5 MG, PRN
     Dates: start: 20060501

REACTIONS (1)
  - AMNESIA [None]
